FAERS Safety Report 7495666-6 (Version None)
Quarter: 2011Q2

REPORT INFORMATION
  Report Type: 
  Country: None (occurrence: None)
  Receive Date: 20110523
  Receipt Date: 20110517
  Transmission Date: 20111010
  Serious: No
  Sender: FDA-Public Use
  Company Number: US-PFIZER INC-2011107709

PATIENT
  Sex: Female
  Weight: 63.492 kg

DRUGS (4)
  1. KLONOPIN [Concomitant]
     Indication: SLEEP DISORDER
     Dosage: UNK
     Route: 048
  2. SYNTHROID [Concomitant]
     Indication: HYPOTHYROIDISM
     Dosage: UNK
     Route: 048
  3. NARDIL [Suspect]
     Indication: DEPRESSION
     Dosage: 15 MG, TWO TABLETS IN THE MORNING AND ONE TAB IN THE EVENING
     Route: 048
     Dates: start: 19850101
  4. ZOCOR [Concomitant]
     Indication: BLOOD CHOLESTEROL ABNORMAL
     Dosage: 20 MG, UNK
     Route: 048

REACTIONS (1)
  - ABDOMINAL PAIN UPPER [None]
